FAERS Safety Report 6497999-9 (Version None)
Quarter: 2009Q4

REPORT INFORMATION
  Report Type: 
  Country: None (occurrence: None)
  Receive Date: 20091125
  Receipt Date: 20090113
  Transmission Date: 20100525
  Serious: Yes (Other)
  Sender: FDA-Public Use
  Company Number: 2009BH000702

PATIENT
  Age: 69 Year
  Sex: Female

DRUGS (14)
  1. DIANEAL [Suspect]
     Indication: PERITONEAL DIALYSIS
     Dosage: 12 L ; EVERY DAY ; IP
     Route: 033
     Dates: start: 20080506
  2. BACTRIM DS [Concomitant]
  3. MIRALAX [Concomitant]
  4. LASIX [Concomitant]
  5. POTASSIUM CHLORIDE [Concomitant]
  6. ARANESP [Concomitant]
  7. VITAMIN [Concomitant]
  8. TUMS [Concomitant]
  9. PROTONIX [Concomitant]
  10. FERGON [Concomitant]
  11. ALLOPURINOL [Concomitant]
  12. ZYRTEC [Concomitant]
  13. METOPROLOL [Concomitant]
  14. CRESTOR [Concomitant]

REACTIONS (1)
  - PERITONITIS BACTERIAL [None]
